FAERS Safety Report 24571858 (Version 3)
Quarter: 2024Q4

REPORT INFORMATION
  Report Type: Spontaneous
  Country: CA (occurrence: CA)
  Receive Date: 20241101
  Receipt Date: 20241231
  Transmission Date: 20250115
  Serious: No
  Sender: PFIZER
  Company Number: CA-PFIZER INC-202400256333

PATIENT
  Age: 22 Year
  Sex: Male

DRUGS (3)
  1. ABRILADA [Suspect]
     Active Substance: ADALIMUMAB-AFZB
     Indication: Hidradenitis
     Dosage: 160 MG ON WK 0, 80 MG ON WK 2, THEN 40 MG EVERY WK FROM WK 4
     Route: 058
     Dates: start: 20240709
  2. ABRILADA [Suspect]
     Active Substance: ADALIMUMAB-AFZB
     Dosage: 160 MG ON WK 0, 80 MG ON WK 2, THEN 40 MG EVERY WK FROM WK 4
     Route: 058
     Dates: start: 20240812
  3. ABRILADA [Suspect]
     Active Substance: ADALIMUMAB-AFZB
     Dosage: 160 MG ON WK 0, 80 MG ON WK 2, THEN 40 MG EVERY WK FROM WK 4
     Route: 058
     Dates: start: 20241015

REACTIONS (2)
  - Drug dose omission by device [Unknown]
  - Wrong technique in device usage process [Unknown]

NARRATIVE: CASE EVENT DATE: 20240801
